FAERS Safety Report 20975455 (Version 2)
Quarter: 2022Q2

REPORT INFORMATION
  Report Type: Report from Study
  Country: DE (occurrence: DE)
  Receive Date: 20220617
  Receipt Date: 20220630
  Transmission Date: 20220721
  Serious: Yes (Hospitalization)
  Sender: FDA-Public Use
  Company Number: DE-BAYER-2022A083460

PATIENT
  Age: 53 Year
  Sex: Male
  Weight: 81.3 kg

DRUGS (8)
  1. COPANLISIB [Suspect]
     Active Substance: COPANLISIB
     Indication: Diffuse large B-cell lymphoma
     Dosage: 60 MG, QD
     Route: 042
     Dates: start: 20220523
  2. RITUXIMAB [Suspect]
     Active Substance: RITUXIMAB
     Indication: Diffuse large B-cell lymphoma
     Dosage: 753.75 MG, QD
     Route: 042
     Dates: start: 20220524
  3. PREDNISONE [Suspect]
     Active Substance: PREDNISONE
     Indication: Diffuse large B-cell lymphoma
     Dosage: 100 MG, QD
     Route: 048
     Dates: start: 20220524
  4. CYCLOPHOSPHAMIDE [Suspect]
     Active Substance: CYCLOPHOSPHAMIDE
     Indication: Diffuse large B-cell lymphoma
     Dosage: DAILY DOSE 1507.5 MG
     Route: 042
     Dates: start: 20220524
  5. DOXORUBICIN [Suspect]
     Active Substance: DOXORUBICIN
     Indication: Diffuse large B-cell lymphoma
     Dosage: 100.5 MG, QD
     Route: 042
     Dates: start: 20220524
  6. VINCRISTINE [Suspect]
     Active Substance: VINCRISTINE
     Indication: Diffuse large B-cell lymphoma
     Dosage: 2 MG, QD
     Route: 042
     Dates: start: 20220524
  7. GRANISETRON [Concomitant]
     Active Substance: GRANISETRON
     Indication: Diffuse large B-cell lymphoma
     Dosage: 2 MG, QD
     Route: 048
     Dates: start: 20220524
  8. MESNA [Concomitant]
     Active Substance: MESNA
     Indication: Diffuse large B-cell lymphoma
     Dosage: 301.5 MG, QD
     Route: 042
     Dates: start: 20220524

REACTIONS (1)
  - Pyrexia [Recovered/Resolved]

NARRATIVE: CASE EVENT DATE: 20220610
